FAERS Safety Report 24951911 (Version 1)
Quarter: 2025Q1

REPORT INFORMATION
  Report Type: Spontaneous
  Country: MY (occurrence: MY)
  Receive Date: 20250210
  Receipt Date: 20250210
  Transmission Date: 20250408
  Serious: Yes (Hospitalization)
  Sender: SANDOZ
  Company Number: MY-002147023-NVSC2025MY020754

PATIENT
  Age: 31 Year
  Sex: Female

DRUGS (7)
  1. AMLODIPINE [Suspect]
     Active Substance: AMLODIPINE BESYLATE
     Indication: Hypertension
     Dosage: 10 MG, QD
     Route: 065
  2. ACTRAPID [Suspect]
     Active Substance: INSULIN HUMAN
     Indication: Hypokalaemia
     Route: 065
  3. ATROPINE [Suspect]
     Active Substance: ATROPINE
     Indication: Hypotension
     Route: 042
  4. ATROPINE [Suspect]
     Active Substance: ATROPINE
     Indication: Bradycardia
  5. CALCIUM GLUCONATE [Suspect]
     Active Substance: CALCIUM GLUCONATE
     Indication: Hypokalaemia
     Route: 042
  6. DEXTROSE [Suspect]
     Active Substance: DEXTROSE MONOHYDRATE
     Indication: Hypokalaemia
     Route: 065
  7. METOPROLOL [Suspect]
     Active Substance: METOPROLOL
     Indication: Hypertension
     Route: 065

REACTIONS (2)
  - Hypotension [Recovered/Resolved]
  - Bradycardia [Recovered/Resolved]
